FAERS Safety Report 4359684-9 (Version None)
Quarter: 2004Q2

REPORT INFORMATION
  Report Type: 
  Country: None (occurrence: None)
  Receive Date: 20040517
  Receipt Date: 20040517
  Transmission Date: 20050107
  Serious: No
  Sender: FDA-Public Use
  Company Number: None

PATIENT
  Age: 48 Year
  Sex: Female
  Weight: 90.7194 kg

DRUGS (4)
  1. BACLOFEN [Suspect]
  2. NADOLOL [Suspect]
  3. LIPITOR [Suspect]
  4. AMITRIPTYLIN 50 MG AD ORAL [Suspect]

REACTIONS (1)
  - WEIGHT INCREASED [None]
